FAERS Safety Report 16582791 (Version 1)
Quarter: 2019Q3

REPORT INFORMATION
  Report Type: Spontaneous
  Country: CH (occurrence: CH)
  Receive Date: 20190717
  Receipt Date: 20190717
  Transmission Date: 20191004
  Serious: Yes (Hospitalization)
  Sender: FDA-Public Use
  Company Number: CH-ROCHE-2349740

PATIENT
  Age: 40 Year
  Sex: Female

DRUGS (11)
  1. BENOCTEN [Suspect]
     Active Substance: DIPHENHYDRAMINE HYDROCHLORIDE
     Indication: PRODUCT USED FOR UNKNOWN INDICATION
     Dosage: 50 MG 16 TABLETS ORAL APPLICATION ON 05 FEBRUARY 2019 ; IN TOTAL
     Route: 048
     Dates: start: 20190205, end: 20190205
  2. BENOCTEN [Suspect]
     Active Substance: DIPHENHYDRAMINE HYDROCHLORIDE
     Dosage: 50 MG 0-4-0-1
     Route: 048
  3. EUTHYROX [Concomitant]
     Active Substance: LEVOTHYROXINE SODIUM
     Route: 048
  4. IMOVANE [Concomitant]
     Active Substance: ZOPICLONE
     Route: 048
  5. FERRUM HAUSMANN [FERRIC HYDROXIDE POLYMALTOSE COMPLEX] [Concomitant]
     Route: 048
  6. FLUCTINE [Concomitant]
     Active Substance: FLUOXETINE HYDROCHLORIDE
     Route: 048
  7. BENERVA [Concomitant]
     Active Substance: THIAMINE HYDROCHLORIDE
     Route: 048
  8. REMERON [Concomitant]
     Active Substance: MIRTAZAPINE
     Route: 048
  9. KCL HAUSMANN [Concomitant]
     Route: 048
  10. VALIUM [Suspect]
     Active Substance: DIAZEPAM
     Indication: PRODUCT USED FOR UNKNOWN INDICATION
     Dosage: 10 MG 5 TABLETS ORAL APPLICATION ON 05 FEBRUARY 2019 ; IN TOTAL
     Route: 048
     Dates: start: 20190205, end: 20190205
  11. VALIUM [Suspect]
     Active Substance: DIAZEPAM
     Dosage: 10 MG 0.5-0-0-0.5
     Route: 048

REACTIONS (4)
  - Electrocardiogram QT prolonged [Recovered/Resolved]
  - Tachycardia [Recovered/Resolved]
  - Poisoning [Recovered/Resolved]
  - Cognitive disorder [Recovered/Resolved]

NARRATIVE: CASE EVENT DATE: 20190205
